FAERS Safety Report 8380210-1 (Version None)
Quarter: 2012Q2

REPORT INFORMATION
  Report Type: 
  Country: None (occurrence: None)
  Receive Date: 20120523
  Receipt Date: 20120514
  Transmission Date: 20120825
  Serious: Yes (Hospitalization)
  Sender: FDA-Public Use
  Company Number: US-ASTRAZENECA-2011SE23326

PATIENT
  Age: 55 Year
  Sex: Female

DRUGS (2)
  1. SYMBICORT [Suspect]
     Dosage: 80/ 4.5 MICROGRAM
     Route: 055
  2. NEXIUM [Suspect]
     Route: 048

REACTIONS (10)
  - NECK INJURY [None]
  - OXYGEN SATURATION DECREASED [None]
  - ROAD TRAFFIC ACCIDENT [None]
  - APHAGIA [None]
  - THROAT IRRITATION [None]
  - EAR PRURITUS [None]
  - DYSPNOEA [None]
  - CHRONIC OBSTRUCTIVE PULMONARY DISEASE [None]
  - BACK INJURY [None]
  - INTENTIONAL DRUG MISUSE [None]
